FAERS Safety Report 6093379-9 (Version None)
Quarter: 2009Q1

REPORT INFORMATION
  Report Type: 
  Country: None (occurrence: None)
  Receive Date: 20090226
  Receipt Date: 20090217
  Transmission Date: 20090719
  Serious: Yes (Death, Hospitalization)
  Sender: FDA-Public Use
  Company Number: BR-ABBOTT-09P-020-0557685-00

PATIENT
  Age: 1 Year
  Sex: Male

DRUGS (1)
  1. DEPAKENE [Suspect]
     Indication: DRUG USE FOR UNKNOWN INDICATION
     Dosage: INGESTED A BIG QUANITY OF DEPAKENE TABS
     Route: 048
     Dates: start: 20090214, end: 20090214

REACTIONS (6)
  - ACCIDENTAL OVERDOSE [None]
  - ACUTE RESPIRATORY FAILURE [None]
  - CARDIAC ARREST [None]
  - POISONING [None]
  - SOMNOLENCE [None]
  - UNRESPONSIVE TO STIMULI [None]
